FAERS Safety Report 6166149-0 (Version None)
Quarter: 2009Q2

REPORT INFORMATION
  Report Type: 
  Country: None (occurrence: None)
  Receive Date: 20090424
  Receipt Date: 20090420
  Transmission Date: 20091009
  Serious: No
  Sender: FDA-Public Use
  Company Number: JP-EISAI INC.-E2020-04355-SPO-JP

PATIENT
  Age: 75 Year
  Sex: Male

DRUGS (5)
  1. ARICEPT [Suspect]
     Route: 048
     Dates: end: 20090101
  2. ARICEPT [Suspect]
     Route: 048
     Dates: start: 20090101, end: 20090209
  3. DOGMATYL [Concomitant]
     Route: 048
  4. SELBEX [Concomitant]
     Route: 048
  5. NAUZELIN [Concomitant]
     Route: 048

REACTIONS (1)
  - RHABDOMYOLYSIS [None]
